FAERS Safety Report 19919129 (Version 2)
Quarter: 2021Q4

REPORT INFORMATION
  Report Type: Report from Study
  Country: US (occurrence: US)
  Receive Date: 20211004
  Receipt Date: 20211006
  Transmission Date: 20220303
  Serious: Yes (Death, Hospitalization, Other)
  Sender: FDA-Public Use
  Company Number: US-BOEHRINGERINGELHEIM-2021-BI-097417

PATIENT
  Age: 80 Year
  Sex: Female

DRUGS (1)
  1. OFEV [Suspect]
     Active Substance: NINTEDANIB
     Indication: Idiopathic pulmonary fibrosis
     Route: 048
     Dates: start: 20190430

REACTIONS (5)
  - Death [Fatal]
  - Cardiac failure congestive [Unknown]
  - Atrial fibrillation [Unknown]
  - Back injury [Unknown]
  - Pleurisy [Unknown]

NARRATIVE: CASE EVENT DATE: 20211002
